FAERS Safety Report 12182555 (Version 16)
Quarter: 2017Q3

REPORT INFORMATION
  Report Type: Report from Study
  Country: KR (occurrence: KR)
  Receive Date: 20160316
  Receipt Date: 20170703
  Transmission Date: 20171127
  Serious: Yes (Life-Threatening, Hospitalization, Other)
  Sender: FDA-Public Use
  Company Number: KR-ROCHE-1725240

PATIENT
  Age: 61 Year
  Sex: Male
  Weight: 54.1 kg

DRUGS (28)
  1. MORPHINE HCL [Concomitant]
     Active Substance: MORPHINE HYDROCHLORIDE
     Indication: ABDOMINAL PAIN
     Route: 065
     Dates: start: 20160322, end: 20160409
  2. FENTANYL. [Concomitant]
     Active Substance: FENTANYL
     Indication: ABDOMINAL PAIN
     Route: 065
     Dates: start: 20160324, end: 20160422
  3. IPRATROPIUM BROMIDE. [Concomitant]
     Active Substance: IPRATROPIUM BROMIDE
     Indication: BRONCHIOLITIS
     Route: 065
     Dates: start: 20160415, end: 20160417
  4. PETHIDINE HCL [Concomitant]
     Indication: ABDOMINAL PAIN
     Route: 065
     Dates: start: 20160323, end: 20160323
  5. METHYLPREDNISOLONE SODIUM SUCCINATE. [Concomitant]
     Active Substance: METHYLPREDNISOLONE SODIUM SUCCINATE
     Indication: PROPHYLAXIS
     Route: 065
     Dates: start: 20160331, end: 20160405
  6. ACETYLCYSTEIN [Concomitant]
     Active Substance: ACETYLCYSTEINE
     Indication: EMPHYSEMA
  7. AMBROXOL [Concomitant]
     Active Substance: AMBROXOL
     Indication: PROPHYLAXIS
     Route: 065
     Dates: start: 20160323, end: 20160423
  8. NYSTATIN. [Concomitant]
     Active Substance: NYSTATIN
     Indication: STOMATITIS
     Dosage: GARGLE
     Route: 065
     Dates: start: 20160325, end: 20160721
  9. FUROSEMIDE. [Concomitant]
     Active Substance: FUROSEMIDE
     Indication: PROPHYLAXIS
     Route: 065
     Dates: start: 20160327, end: 20160403
  10. ACETYLCYSTEIN [Concomitant]
     Active Substance: ACETYLCYSTEINE
     Indication: BRONCHIOLITIS
     Route: 065
     Dates: start: 20160415, end: 20160417
  11. ACETYLCYSTEIN [Concomitant]
     Active Substance: ACETYLCYSTEINE
     Indication: PNEUMONIA ASPIRATION
  12. IPRATROPIUM BROMIDE. [Concomitant]
     Active Substance: IPRATROPIUM BROMIDE
     Indication: EMPHYSEMA
  13. COBIMETINIB. [Suspect]
     Active Substance: COBIMETINIB
     Indication: METASTATIC NEOPLASM
     Dosage: MOST RECENT DOSE PRIOR TO EVENT ONSET: 07/MAR/2016, 60 MG?AS PER PROTOCOL ON DAY 15-35 OF FIRST CYCL
     Route: 048
     Dates: start: 20160216
  14. SALBUTAMOL SULFATE [Concomitant]
     Active Substance: ALBUTEROL SULFATE
     Indication: BRONCHIOLITIS
     Route: 065
     Dates: start: 20160415, end: 20160417
  15. BENZYDAMINE HCL [Concomitant]
     Indication: STOMATITIS
     Route: 065
     Dates: start: 20160325
  16. NYSTATIN. [Concomitant]
     Active Substance: NYSTATIN
     Route: 065
     Dates: start: 20161014, end: 20161021
  17. IPRATROPIUM BROMIDE. [Concomitant]
     Active Substance: IPRATROPIUM BROMIDE
     Indication: PNEUMONIA ASPIRATION
  18. SALBUTAMOL SULFATE [Concomitant]
     Active Substance: ALBUTEROL SULFATE
     Indication: ATELECTASIS
     Route: 065
     Dates: start: 20160325, end: 20160330
  19. SALBUTAMOL SULFATE [Concomitant]
     Active Substance: ALBUTEROL SULFATE
     Indication: EMPHYSEMA
  20. ACETYLCYSTEIN [Concomitant]
     Active Substance: ACETYLCYSTEINE
     Indication: ATELECTASIS
     Route: 065
     Dates: start: 20160325, end: 20160330
  21. IPRATROPIUM BROMIDE. [Concomitant]
     Active Substance: IPRATROPIUM BROMIDE
     Indication: ATELECTASIS
     Route: 065
     Dates: start: 20160415, end: 20160417
  22. POTASSIUM PHOSPHATE, MONOBASIC [Concomitant]
     Active Substance: POTASSIUM PHOSPHATE, MONOBASIC
     Indication: HYPOPHOSPHATAEMIA
     Route: 065
     Dates: start: 20160323, end: 20160411
  23. PROPACETAMOL [Concomitant]
     Active Substance: PROPACETAMOL
     Indication: PYREXIA
     Route: 065
     Dates: start: 20160323, end: 20160323
  24. HYDROCORTISONE SODIUM SUCCINATE [Concomitant]
     Active Substance: HYDROCORTISONE SODIUM SUCCINATE
     Indication: PROPHYLAXIS
     Route: 065
     Dates: start: 20160328, end: 20160330
  25. ALBUMINA [Concomitant]
     Route: 065
     Dates: start: 20160327, end: 20160403
  26. SALBUTAMOL SULFATE [Concomitant]
     Active Substance: ALBUTEROL SULFATE
     Indication: PNEUMONIA ASPIRATION
  27. ATEZOLIZUMAB. [Suspect]
     Active Substance: ATEZOLIZUMAB
     Indication: METASTATIC NEOPLASM
     Dosage: MOST RECENT DOSE PRIOR TO EVENT ONSET: 02/MAR/2016 AT 13:40, 800 MG?AS PER PROTOCOL ON C1D1, C1D15,
     Route: 042
     Dates: start: 20160201
  28. METHYLPREDNISOLONE SODIUM SUCCINATE. [Concomitant]
     Active Substance: METHYLPREDNISOLONE SODIUM SUCCINATE
     Route: 065
     Dates: start: 20160406, end: 20160406

REACTIONS (2)
  - Stevens-Johnson syndrome [Not Recovered/Not Resolved]
  - Ileal perforation [Recovered/Resolved]

NARRATIVE: CASE EVENT DATE: 201603
